FAERS Safety Report 12276053 (Version 1)
Quarter: 2016Q2

REPORT INFORMATION
  Report Type: Report from Study
  Country: PL (occurrence: PL)
  Receive Date: 20160418
  Receipt Date: 20160418
  Transmission Date: 20160815
  Serious: Yes (Other)
  Sender: FDA-Public Use
  Company Number: PL-BAYER-2016-068977

PATIENT
  Age: 50 Year
  Sex: Female

DRUGS (1)
  1. BETAFERON [Suspect]
     Active Substance: INTERFERON BETA-1B
     Indication: MULTIPLE SCLEROSIS
     Dosage: UNK
     Route: 058
     Dates: end: 20160406

REACTIONS (3)
  - Injection site inflammation [None]
  - Thyroid function test abnormal [None]
  - Hormone level abnormal [None]

NARRATIVE: CASE EVENT DATE: 20160405
